FAERS Safety Report 4388797-0 (Version None)
Quarter: 2004Q3

REPORT INFORMATION
  Report Type: 
  Country: None (occurrence: None)
  Receive Date: 20040701
  Receipt Date: 20030130
  Transmission Date: 20050211
  Serious: Yes (Hospitalization, Other)
  Sender: FDA-Public Use
  Company Number: US-MERCK-0302USA00002

PATIENT
  Age: 73 Year
  Sex: Female
  Weight: 75 kg

DRUGS (14)
  1. PREMARIN [Concomitant]
     Indication: PROPHYLAXIS
     Route: 065
     Dates: start: 19610101, end: 20020101
  2. ALLEGRA [Concomitant]
     Route: 065
  3. LASIX [Concomitant]
     Indication: OEDEMA PERIPHERAL
     Route: 065
     Dates: start: 20000501, end: 20010501
  4. PLAQUENIL [Concomitant]
     Indication: ARTHRALGIA
     Route: 065
     Dates: start: 20001101
  5. PLAQUENIL [Concomitant]
     Indication: INFLAMMATION
     Route: 065
     Dates: start: 20001101
  6. ACCUPRIL [Concomitant]
     Indication: HYPERTENSION
     Route: 065
     Dates: start: 20000329, end: 20010914
  7. VIOXX [Suspect]
     Indication: ARTHRALGIA
     Route: 048
     Dates: start: 20000301, end: 20010901
  8. VIOXX [Suspect]
     Route: 048
     Dates: start: 20010901, end: 20011001
  9. VIOXX [Suspect]
     Route: 048
     Dates: start: 20011001, end: 20021001
  10. VIOXX [Suspect]
     Indication: INFLAMMATION
     Route: 048
     Dates: start: 20000301, end: 20010901
  11. VIOXX [Suspect]
     Route: 048
     Dates: start: 20010901, end: 20011001
  12. VIOXX [Suspect]
     Route: 048
     Dates: start: 20011001, end: 20021001
  13. ULTRAM [Concomitant]
     Route: 065
     Dates: start: 20000601
  14. VITAMINS (UNSPECIFIED) [Concomitant]
     Route: 065

REACTIONS (12)
  - DEEP VEIN THROMBOSIS [None]
  - DEPRESSION [None]
  - DIABETES MELLITUS [None]
  - DYSPNOEA [None]
  - HYPERCHOLESTEROLAEMIA [None]
  - HYPERTENSION [None]
  - INTERVERTEBRAL DISC DEGENERATION [None]
  - MENISCUS LESION [None]
  - MIXED INCONTINENCE [None]
  - MYALGIA [None]
  - MYOSITIS [None]
  - POST THROMBOTIC SYNDROME [None]
